FAERS Safety Report 9234192 (Version 1)
Quarter: 2013Q2

REPORT INFORMATION
  Report Type: Spontaneous
  Country: DE (occurrence: ES)
  Receive Date: 20130416
  Receipt Date: 20130416
  Transmission Date: 20140414
  Serious: Yes (Hospitalization)
  Sender: FDA-Public Use
  Company Number: ES-FRI-1000044227

PATIENT
  Age: 80 Year
  Sex: Male
  Weight: 81 kg

DRUGS (4)
  1. ROFLUMILAST [Suspect]
     Indication: CHRONIC OBSTRUCTIVE PULMONARY DISEASE
     Dosage: 500 MCG QOD
     Route: 048
  2. SPIRIVA [Concomitant]
     Indication: CHRONIC OBSTRUCTIVE PULMONARY DISEASE
     Route: 055
     Dates: start: 20130307
  3. OMBREZ [Concomitant]
     Indication: CHRONIC OBSTRUCTIVE PULMONARY DISEASE
     Route: 055
     Dates: start: 20130307
  4. SINTROM [Concomitant]
     Indication: ARRHYTHMIA
     Route: 048
     Dates: start: 201206

REACTIONS (3)
  - Polyuria [Not Recovered/Not Resolved]
  - Flatulence [Not Recovered/Not Resolved]
  - Medication error [Unknown]
